FAERS Safety Report 25672785 (Version 1)
Quarter: 2025Q3

REPORT INFORMATION
  Report Type: Spontaneous
  Country: CA (occurrence: CA)
  Receive Date: 20250812
  Receipt Date: 20250812
  Transmission Date: 20251020
  Serious: Yes (Death)
  Sender: HLS THERAPEUTICS
  Company Number: CA-HLS-202502078

PATIENT
  Age: 72 Year
  Sex: Male

DRUGS (1)
  1. CLOZAPINE [Suspect]
     Active Substance: CLOZAPINE
     Indication: Product used for unknown indication
     Route: 065

REACTIONS (2)
  - Hypercalcaemia [Fatal]
  - Respiratory disorder [Fatal]
